FAERS Safety Report 7274283-7 (Version None)
Quarter: 2010Q4

REPORT INFORMATION
  Report Type: 
  Country: None (occurrence: None)
  Receive Date: 20101206
  Receipt Date: 20100813
  Transmission Date: 20110411
  Serious: No
  Sender: FDA-Public Use
  Company Number: 2010SP044283

PATIENT
  Age: 52 Year
  Sex: Female

DRUGS (6)
  1. SAPHRIS [Suspect]
     Indication: PRODUCT USED FOR UNKNOWN INDICATION
     Dosage: PO
     Route: 048
     Dates: start: 20100126
  2. REQUIP [Concomitant]
  3. WELLBUTRIN [Concomitant]
  4. DEPAKOTE [Concomitant]
  5. LAMICTAL [Concomitant]
  6. KLONOPIN [Concomitant]

REACTIONS (2)
  - INCORRECT ROUTE OF DRUG ADMINISTRATION [None]
  - STOMATITIS [None]
